FAERS Safety Report 5745490-7 (Version None)
Quarter: 2008Q2

REPORT INFORMATION
  Report Type: 
  Country: None (occurrence: None)
  Receive Date: 20080521
  Receipt Date: 20080509
  Transmission Date: 20081010
  Serious: Yes (Life-Threatening, Disabling, Other)
  Sender: FDA-Public Use
  Company Number: GB-ELI_LILLY_AND_COMPANY-GB200805002175

PATIENT
  Age: 48 Year
  Sex: Female
  Weight: 90 kg

DRUGS (3)
  1. CYMBALTA [Suspect]
     Indication: DEPRESSION
     Dosage: 30 MG, UNKNOWN
     Route: 048
     Dates: start: 20080324, end: 20080425
  2. CITALOPRAM HYDROBROMIDE [Concomitant]
     Indication: DEPRESSION
     Dosage: 30 MG, DAILY (1/D)
     Route: 065
     Dates: start: 20080324
  3. DIHYDROCODEINE [Concomitant]
     Indication: PAIN
     Dosage: 60 MG, 3/D
     Route: 048

REACTIONS (5)
  - DEPRESSED MOOD [None]
  - MUSCLE TWITCHING [None]
  - PALPITATIONS [None]
  - SUICIDAL IDEATION [None]
  - VISION BLURRED [None]
